FAERS Safety Report 9647794 (Version 4)
Quarter: 2015Q2

REPORT INFORMATION
  Report Type: Spontaneous
  Country: US (occurrence: US)
  Receive Date: 20131028
  Receipt Date: 20150524
  Transmission Date: 20150821
  Serious: No
  Sender: FDA-Public Use
  Company Number: US-JNJFOC-20131014278

PATIENT
  Age: 61 Year
  Sex: Female
  Weight: 72.58 kg

DRUGS (10)
  1. ESTROGEN [Concomitant]
     Active Substance: ESTRONE\SUS SCROFA OVARY
     Indication: HYSTERECTOMY
     Route: 067
     Dates: start: 1992
  2. DURAGESIC [Suspect]
     Active Substance: FENTANYL
     Indication: PAIN
     Route: 062
     Dates: start: 2007
  3. DURAGESIC [Suspect]
     Active Substance: FENTANYL
     Indication: PRODUCT USED FOR UNKNOWN INDICATION
     Route: 062
  4. VALIUM [Concomitant]
     Active Substance: DIAZEPAM
     Indication: RECTAL SPASM
     Route: 054
     Dates: start: 2004
  5. DURAGESIC [Suspect]
     Active Substance: FENTANYL
     Indication: PAIN
     Route: 062
     Dates: start: 2005, end: 2007
  6. TIZANIDINE (TIZANIDINE) [Concomitant]
     Active Substance: TIZANIDINE
     Indication: PRODUCT USED FOR UNKNOWN INDICATION
     Route: 048
  7. PHENERGAN [Concomitant]
     Active Substance: PROMETHAZINE HYDROCHLORIDE
     Indication: NAUSEA
     Route: 048
  8. MUCINEX [Concomitant]
     Active Substance: GUAIFENESIN
     Indication: PULMONARY FUNCTION TEST ABNORMAL
     Route: 065
  9. ALBUTEROL. [Concomitant]
     Active Substance: ALBUTEROL
     Indication: PULMONARY FUNCTION TEST ABNORMAL
     Route: 065
  10. VALIUM [Concomitant]
     Active Substance: DIAZEPAM
     Indication: VAGINISMUS
     Route: 054
     Dates: start: 2004

REACTIONS (11)
  - Feeling abnormal [Recovered/Resolved]
  - Dizziness [Unknown]
  - Diarrhoea [Unknown]
  - Breakthrough pain [Not Recovered/Not Resolved]
  - Memory impairment [Recovered/Resolved]
  - Nausea [Unknown]
  - Device leakage [Unknown]
  - Wrong technique in drug usage process [Not Recovered/Not Resolved]
  - Wrong technique in drug usage process [Unknown]
  - Hyperhidrosis [Unknown]
  - Product quality issue [Unknown]

NARRATIVE: CASE EVENT DATE: 2006
